FAERS Safety Report 4686600-2 (Version None)
Quarter: 2005Q2

REPORT INFORMATION
  Report Type: 
  Country: None (occurrence: None)
  Receive Date: 20050609
  Receipt Date: 20050530
  Transmission Date: 20051028
  Serious: Yes (Hospitalization)
  Sender: FDA-Public Use
  Company Number: FR-BRISTOL-MYERS SQUIBB COMPANY-12992822

PATIENT
  Age: 64 Year
  Sex: Female

DRUGS (12)
  1. GLUCOPHAGE [Suspect]
     Indication: DIABETES MELLITUS
     Route: 048
     Dates: end: 20050210
  2. PRAXILENE [Suspect]
     Route: 048
     Dates: end: 20050210
  3. PIROXICAM [Suspect]
     Indication: RHEUMATOID ARTHRITIS
     Route: 048
     Dates: end: 20050210
  4. DI-ANTALVIC [Suspect]
     Indication: RHEUMATOID ARTHRITIS
     Route: 048
     Dates: end: 20050210
  5. DIAMICRON [Suspect]
     Indication: DIABETES MELLITUS
     Route: 048
     Dates: end: 20050210
  6. NEXIUM [Suspect]
     Route: 048
     Dates: end: 20050210
  7. CORTANCYL [Suspect]
     Route: 048
     Dates: end: 20050210
  8. KARDEGIC [Suspect]
     Route: 048
     Dates: end: 20050210
  9. DAFLON [Suspect]
     Route: 048
     Dates: end: 20050210
  10. DUPHASTON [Suspect]
     Dates: end: 20050210
  11. NISIS [Suspect]
     Route: 048
     Dates: end: 20050210
  12. TARDYFERON [Suspect]
     Route: 048
     Dates: end: 20050210

REACTIONS (1)
  - PANCYTOPENIA [None]
